FAERS Safety Report 4432313-1 (Version None)
Quarter: 2004Q3

REPORT INFORMATION
  Report Type: 
  Country: None (occurrence: None)
  Receive Date: 20040820
  Receipt Date: 20040812
  Transmission Date: 20050211
  Serious: Yes (Other)
  Sender: FDA-Public Use
  Company Number: 0104-1815

PATIENT

DRUGS (1)
  1. ADVICOR [Suspect]

REACTIONS (1)
  - RHABDOMYOLYSIS [None]
